FAERS Safety Report 8913134 (Version 1)
Quarter: 2012Q4

REPORT INFORMATION
  Report Type: 
  Country: JP (occurrence: JP)
  Receive Date: 20121116
  Receipt Date: 20121116
  Transmission Date: 20130627
  Serious: Yes (Other)
  Sender: FDA-Public Use
  Company Number: JP-ASTRAZENECA-2012SE85328

PATIENT
  Age: 77 Year
  Sex: Female

DRUGS (2)
  1. ARIMIDEX [Suspect]
     Route: 048
  2. OTHER DRUGS [Concomitant]

REACTIONS (2)
  - Cerebral thrombosis [Unknown]
  - Dysarthria [Unknown]
